FAERS Safety Report 5809700-X (Version None)
Quarter: 2008Q3

REPORT INFORMATION
  Report Type: 
  Country: None (occurrence: None)
  Receive Date: 20080711
  Receipt Date: 20080711
  Transmission Date: 20090109
  Serious: Yes (Other)
  Sender: FDA-Public Use
  Company Number: None

PATIENT
  Age: 28 Year
  Sex: Female
  Weight: 76.2043 kg

DRUGS (1)
  1. PROAIR HFA [Suspect]
     Indication: ASTHMA
     Dosage: 2 PUFFS AS NEEDED PO
     Route: 048
     Dates: start: 20080301, end: 20080709

REACTIONS (4)
  - DRUG INEFFECTIVE [None]
  - INCORRECT DOSE ADMINISTERED [None]
  - PANIC REACTION [None]
  - PHARMACEUTICAL PRODUCT COMPLAINT [None]
